FAERS Safety Report 8778781 (Version 1)
Quarter: 2012Q4

REPORT INFORMATION
  Report Type: 
  Country: US (occurrence: US)
  Receive Date: 20120912
  Receipt Date: 20120912
  Transmission Date: 20130627
  Serious: No
  Sender: FDA-Public Use
  Company Number: US-PFIZER INC-2012224237

PATIENT
  Age: 33 Year
  Sex: Female

DRUGS (3)
  1. CHANTIX [Suspect]
     Indication: SMOKING CESSATION THERAPY
     Dosage: 0.5 mg, UNK
     Route: 048
  2. CHANTIX [Suspect]
     Dosage: 1 mg, UNK
     Route: 048
  3. CHANTIX [Suspect]
     Dosage: UNK
     Route: 048

REACTIONS (1)
  - Nightmare [Unknown]
